FAERS Safety Report 4734262-8 (Version None)
Quarter: 2005Q3

REPORT INFORMATION
  Report Type: 
  Country: None (occurrence: None)
  Receive Date: 20050721
  Receipt Date: 20050418
  Transmission Date: 20060218
  Serious: No
  Sender: FDA-Public Use
  Company Number: 2005SP000227

PATIENT
  Age: 77 Year
  Sex: Male

DRUGS (3)
  1. LUNESTA [Suspect]
     Indication: INSOMNIA
     Dosage: 2 MG; HS; ORAL; 3 MG; HS;ORAL
     Route: 048
     Dates: start: 20050412, end: 20050401
  2. ZIAC [Concomitant]
  3. NASAL SPRAY [Concomitant]

REACTIONS (5)
  - AMNESIA [None]
  - ARTHRALGIA [None]
  - ASTHENIA [None]
  - DYSGEUSIA [None]
  - MIDDLE INSOMNIA [None]
